FAERS Safety Report 6388916-0 (Version None)
Quarter: 2009Q4

REPORT INFORMATION
  Report Type: 
  Country: None (occurrence: None)
  Receive Date: 20091001
  Receipt Date: 20090917
  Transmission Date: 20100525
  Serious: Yes (Life-Threatening, Other)
  Sender: FDA-Public Use
  Company Number: POMP-1000724

PATIENT
  Age: 4 Month
  Sex: Female
  Weight: 7.3 kg

DRUGS (1)
  1. MYOZYME        (ALGLUCOSIDASE ALFA) POWDER [Suspect]
     Dosage: UNK UNK, 1X/W, INTRAVENOUS
     Route: 042
     Dates: start: 20081122

REACTIONS (7)
  - COUGH [None]
  - FLUSHING [None]
  - HYPOTONIA [None]
  - PALLOR [None]
  - SERUM SICKNESS [None]
  - UNRESPONSIVE TO STIMULI [None]
  - VOMITING [None]
